FAERS Safety Report 8564557-1 (Version None)
Quarter: 2012Q3

REPORT INFORMATION
  Report Type: 
  Country: None (occurrence: None)
  Receive Date: 20120727
  Receipt Date: 20120727
  Transmission Date: 20120928
  Serious: Yes (Other)
  Sender: FDA-Public Use
  Company Number: None

PATIENT
  Age: 47 Year
  Sex: Female
  Weight: 139.7079 kg

DRUGS (3)
  1. LEVOTHYROXINE SODIUM [Suspect]
     Indication: THYROID HORMONE REPLACEMENT THERAPY
     Dosage: 1 TABLET DAILY 2 ON SUNDAY PO
     Route: 048
     Dates: start: 20120405, end: 20120725
  2. LEVOTHYROXINE SODIUM [Suspect]
     Indication: THYROIDECTOMY
     Dosage: 1 TABLET DAILY 2 ON SUNDAY PO
     Route: 048
     Dates: start: 20120405, end: 20120725
  3. SYNTHROID [Suspect]

REACTIONS (5)
  - PARAESTHESIA [None]
  - PRODUCT QUALITY ISSUE [None]
  - DRUG DOSE OMISSION [None]
  - MUSCLE SPASMS [None]
  - BLOOD THYROID STIMULATING HORMONE INCREASED [None]
